FAERS Safety Report 6194007-4 (Version None)
Quarter: 2009Q2

REPORT INFORMATION
  Report Type: 
  Country: None (occurrence: None)
  Receive Date: 20090518
  Receipt Date: 20090511
  Transmission Date: 20091009
  Serious: Yes (Other)
  Sender: FDA-Public Use
  Company Number: PHEH2008US03404

PATIENT
  Sex: Female

DRUGS (6)
  1. ZOMETA [Suspect]
     Dosage: 4MG MONTHLY
     Dates: start: 20031201
  2. AROMASIN [Concomitant]
  3. XELODA [Concomitant]
  4. HYZAAR [Concomitant]
  5. CHEMOTHERAPEUTICS NOS [Concomitant]
  6. ARIMIDEX [Concomitant]
     Dosage: UNK
     Dates: start: 20031201

REACTIONS (19)
  - ANXIETY [None]
  - CYST [None]
  - DEBRIDEMENT [None]
  - EMOTIONAL DISTRESS [None]
  - FATIGUE [None]
  - GASTROOESOPHAGEAL REFLUX DISEASE [None]
  - INFECTION [None]
  - INJURY [None]
  - INTERVERTEBRAL DISC DEGENERATION [None]
  - OESOPHAGEAL MASS [None]
  - OESOPHAGITIS [None]
  - OSTEOARTHRITIS [None]
  - OSTEONECROSIS [None]
  - OSTEOPENIA [None]
  - PAIN [None]
  - PAIN IN JAW [None]
  - PHYSICAL DISABILITY [None]
  - PNEUMONIA [None]
  - SCAR [None]
